FAERS Safety Report 18510067 (Version 1)
Quarter: 2020Q4

REPORT INFORMATION
  Report Type: Spontaneous
  Country: AT (occurrence: AT)
  Receive Date: 20201117
  Receipt Date: 20201117
  Transmission Date: 20210114
  Serious: Yes (Other)
  Sender: FDA-Public Use
  Company Number: NVSC2020AT301875

PATIENT
  Sex: Female

DRUGS (1)
  1. GILENYA [Suspect]
     Active Substance: FINGOLIMOD HYDROCHLORIDE
     Indication: PRODUCT USED FOR UNKNOWN INDICATION
     Route: 065

REACTIONS (5)
  - Optic atrophy [Unknown]
  - Lymphatic disorder [Unknown]
  - Blood disorder [Unknown]
  - Dyschromatopsia [Unknown]
  - Influenza [Unknown]

NARRATIVE: CASE EVENT DATE: 20151215
